FAERS Safety Report 11541921 (Version 1)
Quarter: 2015Q3

REPORT INFORMATION
  Report Type: Spontaneous
  Country: SE (occurrence: SE)
  Receive Date: 20150923
  Receipt Date: 20150923
  Transmission Date: 20151125
  Serious: Yes (Other)
  Sender: FDA-Public Use
  Company Number: SE-CONCORDIA PHARMACEUTICALS INC.-CO-PL-SE-2015-254

PATIENT
  Age: 64 Year
  Sex: Female

DRUGS (1)
  1. PLAQUENIL [Suspect]
     Active Substance: HYDROXYCHLOROQUINE SULFATE
     Indication: RHEUMATOID ARTHRITIS
     Dates: start: 19910929, end: 20140527

REACTIONS (10)
  - Visual field defect [Unknown]
  - Retinal disorder [Unknown]
  - Skin disorder [Not Recovered/Not Resolved]
  - Paraesthesia [Not Recovered/Not Resolved]
  - Maculopathy [Not Recovered/Not Resolved]
  - Palpitations [Unknown]
  - Skin lesion [Not Recovered/Not Resolved]
  - Blood pressure decreased [Unknown]
  - Photophobia [Unknown]
  - Hypoaesthesia [Unknown]

NARRATIVE: CASE EVENT DATE: 201405
